FAERS Safety Report 14491223 (Version 3)
Quarter: 2018Q3

REPORT INFORMATION
  Report Type: Spontaneous
  Country: US (occurrence: US)
  Receive Date: 20180206
  Receipt Date: 20180702
  Transmission Date: 20181010
  Serious: No
  Sender: FDA-Public Use
  Company Number: US-PFIZER INC-2018052034

PATIENT
  Age: 64 Year
  Sex: Female

DRUGS (1)
  1. IBRANCE [Suspect]
     Active Substance: PALBOCICLIB
     Indication: BREAST CANCER FEMALE
     Dosage: 125 MG, CYCLIC (1 CAPSULE(S) ORALLY ONCE A DAY FOR 21 DAYS, THEN TAKE 7 DAYS OFF)
     Route: 048

REACTIONS (7)
  - Gait disturbance [Unknown]
  - Nasopharyngitis [Unknown]
  - Cough [Unknown]
  - Stomatitis [Unknown]
  - Ear congestion [Unknown]
  - Osteoarthritis [Unknown]
  - Sinusitis [Unknown]
